FAERS Safety Report 4820630-2 (Version None)
Quarter: 2005Q4

REPORT INFORMATION
  Report Type: 
  Country: None (occurrence: None)
  Receive Date: 20051104
  Receipt Date: 20051024
  Transmission Date: 20060501
  Serious: Yes (Hospitalization)
  Sender: FDA-Public Use
  Company Number: FI-GLAXOSMITHKLINE-B0398426A

PATIENT
  Age: 78 Year
  Sex: Female

DRUGS (1)
  1. AVANDAMET [Suspect]
     Route: 065
     Dates: start: 20050923, end: 20051013

REACTIONS (4)
  - DIZZINESS [None]
  - DYSPNOEA [None]
  - MALAISE [None]
  - PARAESTHESIA [None]
